FAERS Safety Report 18095194 (Version 1)
Quarter: 2020Q3

REPORT INFORMATION
  Report Type: Spontaneous
  Country: JP (occurrence: JP)
  Receive Date: 20200730
  Receipt Date: 20200730
  Transmission Date: 20201103
  Serious: Yes (Hospitalization)
  Sender: FDA-Public Use
  Company Number: JP-JNJFOC-20200732505

PATIENT
  Age: 94 Year
  Sex: Female
  Weight: 32 kg

DRUGS (3)
  1. FRANDOL [Concomitant]
     Active Substance: ISOSORBIDE DINITRATE
     Indication: ARRHYTHMIA PROPHYLAXIS
     Dosage: UNK
  2. XARELTO [Suspect]
     Active Substance: RIVAROXABAN
     Indication: ARRHYTHMIA PROPHYLAXIS
     Dosage: UNK
     Route: 048
     Dates: start: 20191223
  3. LOXONIN [Concomitant]
     Active Substance: LOXOPROFEN SODIUM
     Indication: ARRHYTHMIA PROPHYLAXIS
     Dosage: UNK

REACTIONS (2)
  - Fall [Unknown]
  - Traumatic fracture [Unknown]

NARRATIVE: CASE EVENT DATE: 20191226
